FAERS Safety Report 4307210-2 (Version None)
Quarter: 2004Q1

REPORT INFORMATION
  Report Type: 
  Country: None (occurrence: None)
  Receive Date: 20040225
  Receipt Date: 20040213
  Transmission Date: 20041129
  Serious: Yes (Death)
  Sender: FDA-Public Use
  Company Number: USA-2003-0007236

PATIENT
  Age: 18 Year
  Sex: Male
  Weight: 64.9 kg

DRUGS (2)
  1. OXYCODONE HCL [Suspect]
  2. HYDROCODONE BITARTRATE [Suspect]

REACTIONS (9)
  - BRONCHOPNEUMONIA [None]
  - CARDIAC VALVE VEGETATION [None]
  - CLOSTRIDIUM BACTERAEMIA [None]
  - GASTRIC HAEMORRHAGE [None]
  - RESPIRATORY FAILURE [None]
  - SPLENIC INFARCTION [None]
  - STAPHYLOCOCCAL SEPSIS [None]
  - THROMBOSIS [None]
  - WOUND INFECTION [None]
